FAERS Safety Report 15663504 (Version 2)
Quarter: 2019Q3

REPORT INFORMATION
  Report Type: Spontaneous
  Country: CA (occurrence: CA)
  Receive Date: 20181128
  Receipt Date: 20190910
  Transmission Date: 20191004
  Serious: Yes (Death, Hospitalization, Other)
  Sender: FDA-Public Use
  Company Number: CA-ORION CORPORATION ORION PHARMA-TREX2018-3403

PATIENT
  Age: 67 Year
  Sex: Female

DRUGS (4)
  1. METHOTREXATE (TRADE NAME UNKNOWN) [Suspect]
     Active Substance: METHOTREXATE
     Indication: PSORIATIC ARTHROPATHY
     Route: 065
     Dates: start: 2013, end: 201807
  2. XELJANZ [Suspect]
     Active Substance: TOFACITINIB CITRATE
     Indication: PSORIATIC ARTHROPATHY
     Route: 048
     Dates: start: 20180614, end: 20180719
  3. ZOSTAVAX [Concomitant]
     Active Substance: VARICELLA-ZOSTER VIRUS STRAIN OKA/MERCK LIVE ANTIGEN
     Dosage: VARICELLA ZOSTER VACCINE LIVE (OKA/MERCK)
     Route: 065
     Dates: start: 20180517, end: 20180517
  4. PLAQUENIL [Concomitant]
     Active Substance: HYDROXYCHLOROQUINE SULFATE
     Indication: PSORIATIC ARTHROPATHY
     Route: 048
     Dates: start: 2013, end: 201807

REACTIONS (9)
  - Pancytopenia [Fatal]
  - General physical health deterioration [Fatal]
  - Enterococcal sepsis [Fatal]
  - Genitourinary symptom [Not Recovered/Not Resolved]
  - Bone marrow failure [Fatal]
  - Pneumonia [Not Recovered/Not Resolved]
  - Fatigue [Fatal]
  - Febrile neutropenia [Not Recovered/Not Resolved]
  - Abscess [Not Recovered/Not Resolved]

NARRATIVE: CASE EVENT DATE: 201807
